FAERS Safety Report 20991490 (Version 2)
Quarter: 2022Q3

REPORT INFORMATION
  Report Type: Report from Study
  Country: US (occurrence: US)
  Receive Date: 20220622
  Receipt Date: 20220721
  Transmission Date: 20221027
  Serious: Yes (Other)
  Sender: FDA-Public Use
  Company Number: US-UCBSA-2022033846

PATIENT
  Sex: Female

DRUGS (2)
  1. CERTOLIZUMAB PEGOL [Suspect]
     Active Substance: CERTOLIZUMAB PEGOL
     Indication: Ankylosing spondylitis
     Dosage: LOADING DOSES
     Dates: start: 20220421
  2. CERTOLIZUMAB PEGOL [Suspect]
     Active Substance: CERTOLIZUMAB PEGOL
     Dosage: 200 MILLIGRAM, EV 2 WEEKS(QOW)
     Dates: start: 2022, end: 2022

REACTIONS (3)
  - Ankylosing spondylitis [Not Recovered/Not Resolved]
  - Psoriasis [Not Recovered/Not Resolved]
  - Therapeutic product effect incomplete [Unknown]

NARRATIVE: CASE EVENT DATE: 20220101
